FAERS Safety Report 4520161-3 (Version None)
Quarter: 2004Q4

REPORT INFORMATION
  Report Type: 
  Country: None (occurrence: None)
  Receive Date: 20041207
  Receipt Date: 20041126
  Transmission Date: 20050328
  Serious: Yes (Other)
  Sender: FDA-Public Use
  Company Number: JP-NOVOPROD-240785

PATIENT
  Age: 77 Year
  Sex: Male

DRUGS (5)
  1. NOVORAPID 30 MIX CHU FLEXPEN [Suspect]
     Indication: DIABETES MELLITUS
     Dosage: 8 IU, QD
     Route: 058
     Dates: start: 20040415, end: 20041123
  2. NOVORAPID CHU [Suspect]
     Indication: DIABETES MELLITUS
     Dosage: 5 - 14 IU QD
     Route: 058
     Dates: start: 20040324, end: 20041123
  3. FLUTRIA [Concomitant]
     Indication: ILL-DEFINED DISORDER
     Route: 048
  4. ENALAPRIL MALEATE [Concomitant]
     Indication: ILL-DEFINED DISORDER
     Route: 048
  5. KINEDAK [Concomitant]
     Indication: ILL-DEFINED DISORDER
     Route: 048

REACTIONS (3)
  - ALANINE AMINOTRANSFERASE INCREASED [None]
  - ASPARTATE AMINOTRANSFERASE INCREASED [None]
  - GAMMA-GLUTAMYLTRANSFERASE INCREASED [None]
